FAERS Safety Report 8301808-2 (Version None)
Quarter: 2012Q2

REPORT INFORMATION
  Report Type: 
  Country: None (occurrence: None)
  Receive Date: 20120420
  Receipt Date: 20120411
  Transmission Date: 20120825
  Serious: Yes (Other)
  Sender: FDA-Public Use
  Company Number: US-ASTRAZENECA-2012SE17085

PATIENT
  Age: 61 Year
  Sex: Female
  Weight: 59 kg

DRUGS (10)
  1. PROZAC [Concomitant]
  2. ATENOLOL [Suspect]
  3. REGLAN [Concomitant]
     Indication: GASTROOESOPHAGEAL REFLUX DISEASE
  4. FEXOFENADINE [Concomitant]
  5. THYROID TAB [Concomitant]
  6. PREMARIN [Concomitant]
  7. SINGULAIR [Concomitant]
  8. VALACYCLOVIR [Concomitant]
  9. NEXIUM [Suspect]
     Indication: GASTROOESOPHAGEAL REFLUX DISEASE
     Route: 048
  10. FLUTICASONE FUROATE [Concomitant]

REACTIONS (12)
  - DRUG DOSE OMISSION [None]
  - GASTRIC ULCER [None]
  - THROMBOSIS [None]
  - DYSPEPSIA [None]
  - BURNING SENSATION [None]
  - THROAT IRRITATION [None]
  - DIARRHOEA [None]
  - ORAL DISCOMFORT [None]
  - TONGUE COATED [None]
  - GLOSSODYNIA [None]
  - GASTROOESOPHAGEAL REFLUX DISEASE [None]
  - DRUG INEFFECTIVE [None]
